FAERS Safety Report 22797346 (Version 4)
Quarter: 2023Q4

REPORT INFORMATION
  Report Type: Spontaneous
  Country: US (occurrence: US)
  Receive Date: 20230808
  Receipt Date: 20231120
  Transmission Date: 20240110
  Serious: No
  Sender: FDA-Public Use
  Company Number: US-BIOGEN-2023BI01193977

PATIENT
  Sex: Female

DRUGS (12)
  1. VUMERITY [Suspect]
     Active Substance: DIROXIMEL FUMARATE
     Indication: Multiple sclerosis
     Dosage: TAKE 2 CAPSULES (462MG) BY MOUTH TWICE DAILY.
     Route: 050
     Dates: start: 20201223
  2. VUMERITY [Suspect]
     Active Substance: DIROXIMEL FUMARATE
     Dosage: CUT THE VUMERITY DOSAGE IN HALF
     Route: 050
     Dates: start: 20230622, end: 20231004
  3. TUMS [Suspect]
     Active Substance: CALCIUM CARBONATE
     Indication: Gastrooesophageal reflux disease
     Route: 050
  4. MAALOX ANTACID [Suspect]
     Active Substance: ALUMINUM HYDROXIDE\DIMETHICONE\MAGNESIUM HYDROXIDE
     Indication: Gastrooesophageal reflux disease
     Route: 050
  5. LEVOTHYROXINE SODIUM [Concomitant]
     Active Substance: LEVOTHYROXINE SODIUM
     Route: 050
  6. ELOCON [Concomitant]
     Active Substance: MOMETASONE FUROATE
     Route: 050
  7. RESTASIS [Concomitant]
     Active Substance: CYCLOSPORINE
     Route: 050
  8. MINERALS\VITAMINS [Concomitant]
     Active Substance: MINERALS\VITAMINS
     Route: 050
  9. FLAXSEED [Concomitant]
     Active Substance: FLAX SEED
     Route: 050
  10. OXYBUTYNIN CHLORIDE [Concomitant]
     Active Substance: OXYBUTYNIN CHLORIDE
     Route: 050
  11. FAMOTIDINE [Concomitant]
     Active Substance: FAMOTIDINE
     Route: 050
  12. MYLANTA ULTRA [Concomitant]
     Route: 050

REACTIONS (11)
  - Product dose omission issue [Unknown]
  - Red blood cell count decreased [Not Recovered/Not Resolved]
  - Haemoglobin decreased [Unknown]
  - Gastrointestinal disorder [Unknown]
  - Gastrooesophageal reflux disease [Unknown]
  - Tremor [Unknown]
  - Anaemia [Unknown]
  - Nephropathy [Unknown]
  - Immune system disorder [Unknown]
  - Diarrhoea [Unknown]
  - Flushing [Unknown]

NARRATIVE: CASE EVENT DATE: 20210101
